FAERS Safety Report 6410782-5 (Version None)
Quarter: 2009Q4

REPORT INFORMATION
  Report Type: 
  Country: None (occurrence: None)
  Receive Date: 20091016
  Receipt Date: 20091009
  Transmission Date: 20100525
  Serious: Yes (Hospitalization, Other)
  Sender: FDA-Public Use
  Company Number: 09US004306

PATIENT
  Age: 49 Year
  Sex: Male
  Weight: 89.8 kg

DRUGS (3)
  1. PERMETHRIN                     1T6 (PERMETHRIN) CREAM [Suspect]
     Indication: PRURITUS
     Dosage: 1 APPLICATION, TWICE IN 3 DAYS, TOPICAL
     Route: 061
     Dates: start: 20080301, end: 20080303
  2. PERMETHRIN                     1T6 (PERMETHRIN) CREAM [Suspect]
     Indication: RASH
     Dosage: 1 APPLICATION, TWICE IN 3 DAYS, TOPICAL
     Route: 061
     Dates: start: 20080301, end: 20080303
  3. ANALGESICS [Concomitant]

REACTIONS (7)
  - ARTHRALGIA [None]
  - DERMATITIS [None]
  - DRUG ADMINISTRATION ERROR [None]
  - IMPAIRED HEALING [None]
  - LEUKOCYTOCLASTIC VASCULITIS [None]
  - OEDEMA PERIPHERAL [None]
  - TENDON RUPTURE [None]
